FAERS Safety Report 6404577-6 (Version None)
Quarter: 2009Q4

REPORT INFORMATION
  Report Type: 
  Country: None (occurrence: None)
  Receive Date: 20091016
  Receipt Date: 20091016
  Transmission Date: 20100525
  Serious: Yes (Hospitalization)
  Sender: FDA-Public Use
  Company Number: PHHO2007US01183

PATIENT
  Sex: Male
  Weight: 96.3 kg

DRUGS (28)
  1. RAD 666 RAD+TAB+PTR [Suspect]
     Indication: PROPHYLAXIS AGAINST TRANSPLANT REJECTION
     Dosage: 0.75 MG, BID
     Route: 048
     Dates: start: 20060703
  2. NEORAL [Concomitant]
     Indication: RENAL TRANSPLANT
     Dosage: 50 MG, BID
     Route: 048
     Dates: start: 20060703
  3. PREDNISONE [Concomitant]
     Indication: RENAL TRANSPLANT
     Dosage: 10 MG, BID
     Route: 048
     Dates: start: 20060721
  4. METHYLPREDNISOLONE [Concomitant]
  5. BASILIXIMAB [Concomitant]
  6. KAYEXALATE [Concomitant]
  7. NORVASC [Concomitant]
  8. COLACE [Concomitant]
  9. LISINOPRIL [Concomitant]
  10. PRINIVIL [Concomitant]
  11. INSULIN [Concomitant]
  12. DILAUDID [Concomitant]
  13. DIFLUCAN [Concomitant]
  14. PEPCID [Concomitant]
  15. BACTRIM [Concomitant]
  16. GANCICLOVIR [Concomitant]
  17. MYCELEX [Concomitant]
  18. LOPRESSOR [Concomitant]
  19. REGULAR INSULIN [Concomitant]
  20. ZOFRON [Concomitant]
  21. VICILAN [Concomitant]
  22. VALCYTE [Concomitant]
  23. NYSTATIN [Concomitant]
  24. PREVACID [Concomitant]
  25. MAGNESIUM OXIDE [Concomitant]
  26. PRILOSEC [Concomitant]
  27. TYLENOL [Concomitant]
  28. LIPITOR [Concomitant]

REACTIONS (4)
  - CHILLS [None]
  - DIABETES MELLITUS [None]
  - OSTEOMYELITIS [None]
  - PYREXIA [None]
